FAERS Safety Report 21627756 (Version 2)
Quarter: 2022Q4

REPORT INFORMATION
  Report Type: Spontaneous
  Country: GR (occurrence: GR)
  Receive Date: 20221122
  Receipt Date: 20221209
  Transmission Date: 20230113
  Serious: Yes (Other)
  Sender: FDA-Public Use
  Company Number: GR-ELI_LILLY_AND_COMPANY-GR202211005402

PATIENT
  Age: 52 Year
  Sex: Male
  Weight: 120 kg

DRUGS (4)
  1. TRULICITY [Suspect]
     Active Substance: DULAGLUTIDE
     Indication: Diabetes mellitus
     Dosage: 1.5 MG, WEEKLY (1/W)
     Route: 058
     Dates: start: 2020, end: 20221108
  2. TRESIBA [Concomitant]
     Active Substance: INSULIN DEGLUDEC
     Dosage: UNK UNK, UNKNOWN
     Route: 065
  3. NYSTATIN [Concomitant]
     Active Substance: NYSTATIN
     Indication: Dyslipidaemia
     Dosage: UNK UNK, UNKNOWN
     Route: 065
  4. NYSTATIN [Concomitant]
     Active Substance: NYSTATIN
     Indication: Hypertension

REACTIONS (2)
  - Leukaemia [Not Recovered/Not Resolved]
  - Nausea [Unknown]
